FAERS Safety Report 6714908-5 (Version None)
Quarter: 2010Q2

REPORT INFORMATION
  Report Type: 
  Country: None (occurrence: None)
  Receive Date: 20100507
  Receipt Date: 20100430
  Transmission Date: 20101027
  Serious: No
  Sender: FDA-Public Use
  Company Number: CY-ASTRAZENECA-2010SE20535

PATIENT
  Age: 9113 Day
  Sex: Male
  Weight: 94 kg

DRUGS (2)
  1. SEROQUEL XR [Suspect]
     Indication: SCHIZOPHRENIA
     Route: 048
     Dates: start: 20090701
  2. LORAZEPAM [Concomitant]
     Indication: INSOMNIA
     Route: 048
     Dates: start: 20090701

REACTIONS (1)
  - PLATELET COUNT DECREASED [None]
